FAERS Safety Report 8516169-3 (Version None)
Quarter: 2012Q3

REPORT INFORMATION
  Report Type: 
  Country: None (occurrence: None)
  Receive Date: 20120717
  Receipt Date: 20120712
  Transmission Date: 20120928
  Serious: Yes (Other)
  Sender: FDA-Public Use
  Company Number: CA-ROCHE-1014293

PATIENT
  Sex: Male
  Weight: 81 kg

DRUGS (3)
  1. ANTIBIOTICS (NOT SPECIFIED) [Concomitant]
  2. XOLAIR [Suspect]
     Indication: RHINITIS
     Route: 058
     Dates: start: 20090707
  3. XOLAIR [Suspect]
     Indication: ASTHMA
     Route: 058
     Dates: start: 20051015

REACTIONS (5)
  - INFLUENZA [None]
  - HYPERSENSITIVITY [None]
  - PNEUMONIA [None]
  - NASOPHARYNGITIS [None]
  - BLOOD PRESSURE INCREASED [None]
